FAERS Safety Report 19685901 (Version 1)
Quarter: 2021Q3

REPORT INFORMATION
  Report Type: Spontaneous
  Country: JP (occurrence: JP)
  Receive Date: 20210811
  Receipt Date: 20210811
  Transmission Date: 20211014
  Serious: Yes (Other)
  Sender: FDA-Public Use
  Company Number: JP-TEVA-2021-JP-1930335

PATIENT
  Age: 79 Year
  Sex: Male

DRUGS (16)
  1. PREDNISOLONE. [Suspect]
     Active Substance: PREDNISOLONE
     Indication: MANTLE CELL LYMPHOMA
     Dosage: VR?CAP CHEMOTHERAPY (FIRST?LINE TREATMENT); ON DAY 1?5
     Route: 065
  2. BENDAMUSTINE HYDROCHLORIDE. [Suspect]
     Active Substance: BENDAMUSTINE HYDROCHLORIDE
     Indication: IMMUNE THROMBOCYTOPENIA
     Dosage: R?B CHEMOTHERAPY (SECOND?LINE TREATMENT); ON DAY 0 AND 1
     Route: 042
  3. IMMUNOGLOBULIN (IVIG) [Suspect]
     Active Substance: HUMAN IMMUNOGLOBULIN G
     Indication: IMMUNE THROMBOCYTOPENIA
     Dosage: 400 MG/KG DAILY; FIRST?LINE TREATMENT
     Route: 042
  4. DOXORUBICIN [Suspect]
     Active Substance: DOXORUBICIN
     Indication: MANTLE CELL LYMPHOMA
     Dosage: VR?CAP CHEMOTHERAPY (FIRST?LINE TREATMENT); ON DAY 1
     Route: 065
  5. PREDNISONE. [Suspect]
     Active Substance: PREDNISONE
     Indication: IMMUNE THROMBOCYTOPENIA
     Dosage: .5 MILLIGRAM DAILY; SECOND?LINE TREATMENT
     Route: 065
  6. RITUXIMAB. [Suspect]
     Active Substance: RITUXIMAB
     Indication: IMMUNE THROMBOCYTOPENIA
     Dosage: MONOTHERAPY (THIRD?LINE TREATMENT)
     Route: 065
  7. RITUXIMAB. [Suspect]
     Active Substance: RITUXIMAB
     Dosage: R?B CHEMOTHERAPY (SECOND?LINE TREATMENT); ON DAY 0
     Route: 065
  8. PREDNISOLONE. [Suspect]
     Active Substance: PREDNISOLONE
     Indication: IMMUNE THROMBOCYTOPENIA
  9. PREDNISONE. [Suspect]
     Active Substance: PREDNISONE
     Indication: MANTLE CELL LYMPHOMA
  10. BORTEZOMIB. [Suspect]
     Active Substance: BORTEZOMIB
     Indication: MANTLE CELL LYMPHOMA
     Dosage: VR?CAP CHEMOTHERAPY (FIRST?LINE TREATMENT); ON DAY 1, 4, 8 AND 11
     Route: 065
  11. BORTEZOMIB. [Suspect]
     Active Substance: BORTEZOMIB
     Indication: IMMUNE THROMBOCYTOPENIA
  12. CYCLOPHOSPHAMIDE. [Suspect]
     Active Substance: CYCLOPHOSPHAMIDE
     Indication: MANTLE CELL LYMPHOMA
     Dosage: VR?CAP CHEMOTHERAPY (FIRST?LINE TREATMENT); ON DAY 1
     Route: 065
  13. BENDAMUSTINE HYDROCHLORIDE. [Suspect]
     Active Substance: BENDAMUSTINE HYDROCHLORIDE
     Indication: MANTLE CELL LYMPHOMA
  14. RITUXIMAB. [Suspect]
     Active Substance: RITUXIMAB
     Indication: MANTLE CELL LYMPHOMA RECURRENT
     Dosage: VR?CAP CHEMOTHERAPY (FIRST?LINE TREATMENT); ON DAY 0
     Route: 065
  15. CYCLOPHOSPHAMIDE. [Suspect]
     Active Substance: CYCLOPHOSPHAMIDE
     Indication: IMMUNE THROMBOCYTOPENIA
  16. DOXORUBICIN [Suspect]
     Active Substance: DOXORUBICIN
     Indication: IMMUNE THROMBOCYTOPENIA

REACTIONS (4)
  - Myelosuppression [Unknown]
  - Off label use [Unknown]
  - Drug ineffective for unapproved indication [Unknown]
  - Cytopenia [Recovered/Resolved]
